FAERS Safety Report 24180775 (Version 1)
Quarter: 2024Q3

REPORT INFORMATION
  Report Type: Spontaneous
  Country: CN (occurrence: CN)
  Receive Date: 20240806
  Receipt Date: 20240806
  Transmission Date: 20241017
  Serious: Yes (Hospitalization, Other)
  Sender: NOVARTIS
  Company Number: CN-002147023-NVSC2024CN158210

PATIENT
  Age: 71 Year
  Sex: Male
  Weight: 66.3 kg

DRUGS (1)
  1. IMATINIB MESYLATE [Suspect]
     Active Substance: IMATINIB MESYLATE
     Indication: Gastrointestinal stromal tumour
     Dosage: 0.2 G, QD
     Route: 048
     Dates: start: 20240720, end: 20240722

REACTIONS (6)
  - Drug eruption [Recovering/Resolving]
  - Pyrexia [Recovering/Resolving]
  - Erythema [Recovering/Resolving]
  - Pruritus [Recovering/Resolving]
  - Dermatitis exfoliative [Recovering/Resolving]
  - Hyperpyrexia [Unknown]

NARRATIVE: CASE EVENT DATE: 20240720
